FAERS Safety Report 24943354 (Version 2)
Quarter: 2025Q1

REPORT INFORMATION
  Report Type: Report from Study
  Country: US (occurrence: US)
  Receive Date: 20250207
  Receipt Date: 20250324
  Transmission Date: 20250409
  Serious: Yes (Hospitalization, Other)
  Sender: ALEXION PHARMACEUTICALS
  Company Number: US-AstraZeneca-CH-00797396AP

PATIENT

DRUGS (1)
  1. BENRALIZUMAB [Suspect]
     Active Substance: BENRALIZUMAB
     Indication: Asthma
     Route: 065

REACTIONS (9)
  - Pneumonia streptococcal [Unknown]
  - Drug dose omission by device [Unknown]
  - Cerebral disorder [Unknown]
  - Influenza [Unknown]
  - Injection site injury [Unknown]
  - Needle issue [Unknown]
  - Dysphonia [Unknown]
  - Productive cough [Unknown]
  - Bronchiectasis [Unknown]
